FAERS Safety Report 25240252 (Version 7)
Quarter: 2025Q2

REPORT INFORMATION
  Report Type: Report from Study
  Country: JP (occurrence: JP)
  Receive Date: 20250425
  Receipt Date: 20250604
  Transmission Date: 20250717
  Serious: Yes (Death, Hospitalization)
  Sender: EISAI
  Company Number: JP-Eisai-202501119_LEQ_P_1

PATIENT
  Age: 85 Year
  Sex: Female
  Weight: 48 kg

DRUGS (8)
  1. LEQEMBI [Suspect]
     Active Substance: LECANEMAB-IRMB
     Indication: Dementia Alzheimer^s type
     Dates: start: 20241217, end: 2025
  2. LEQEMBI [Suspect]
     Active Substance: LECANEMAB-IRMB
     Dates: start: 20250415, end: 20250415
  3. ROSUVASTATIN [Concomitant]
     Active Substance: ROSUVASTATIN
     Indication: Lipids abnormal
     Dosage: AFTER BREAKFAST
     Route: 048
     Dates: end: 20250423
  4. ONEALFA [Concomitant]
     Active Substance: ALFACALCIDOL
     Indication: Osteoporosis
     Dosage: AFTER BREAKFAST
     Route: 048
     Dates: end: 20250423
  5. DONEZEPIL HYDROCHLORIDE OD [Concomitant]
  6. AMLODIPINE BESYLATE [Concomitant]
     Active Substance: AMLODIPINE BESYLATE
     Indication: Hypertension
     Dosage: AFTER BREAKFAST
     Dates: end: 20250423
  7. MINODRONIC ACID [Concomitant]
     Active Substance: MINODRONIC ACID
     Indication: Osteoporosis
     Dosage: AFTER BREAKFAST
     Dates: end: 20250423
  8. FOLIC ACID [Concomitant]
     Active Substance: FOLIC ACID
     Indication: Folate deficiency
     Dosage: AFTER BREAKFAST
     Dates: end: 20250423

REACTIONS (1)
  - Cerebral haemorrhage [Fatal]

NARRATIVE: CASE EVENT DATE: 20250423
